FAERS Safety Report 18431372 (Version 1)
Quarter: 2020Q4

REPORT INFORMATION
  Report Type: Spontaneous
  Country: US (occurrence: US)
  Receive Date: 20201027
  Receipt Date: 20201027
  Transmission Date: 20210114
  Serious: Yes (Hospitalization)
  Sender: FDA-Public Use
  Company Number: None

PATIENT
  Age: 17 Year
  Sex: Male
  Weight: 87.6 kg

DRUGS (4)
  1. FERROUS SULFATE. [Concomitant]
     Active Substance: FERROUS SULFATE
  2. ERGOCALCIFEROL (ERGOCALCIFEROL) [Concomitant]
     Active Substance: ERGOCALCIFEROL
  3. INFLIXIMAB [Suspect]
     Active Substance: INFLIXIMAB
  4. MVI CHEWABLE [Concomitant]

REACTIONS (4)
  - Diarrhoea [None]
  - Weight decreased [None]
  - Abdominal pain [None]
  - Arthralgia [None]

NARRATIVE: CASE EVENT DATE: 20200730
